FAERS Safety Report 4787379-6 (Version None)
Quarter: 2005Q4

REPORT INFORMATION
  Report Type: 
  Country: None (occurrence: None)
  Receive Date: 20051003
  Receipt Date: 20050926
  Transmission Date: 20060501
  Serious: Yes (Other)
  Sender: FDA-Public Use
  Company Number: 163-20785-05090350

PATIENT
  Age: 54 Year
  Sex: Female

DRUGS (1)
  1. THALOMID [Suspect]
     Indication: NEOPLASM MALIGNANT
     Dosage: 150-500MG, DAILY, ORAL
     Route: 048
     Dates: start: 20050209, end: 20050921

REACTIONS (1)
  - LABORATORY TEST ABNORMAL [None]
